FAERS Safety Report 4574107-2 (Version None)
Quarter: 2005Q1

REPORT INFORMATION
  Report Type: 
  Country: None (occurrence: None)
  Receive Date: 20050208
  Receipt Date: 20041018
  Transmission Date: 20050727
  Serious: No
  Sender: FDA-Public Use
  Company Number: US-GLAXOSMITHKLINE-A0530234A

PATIENT
  Age: 72 Year
  Sex: Male

DRUGS (17)
  1. PAXIL [Suspect]
     Indication: DEPRESSION
     Dosage: 20MG PER DAY
     Route: 048
  2. WELLBUTRIN XL [Suspect]
     Indication: DEPRESSION
     Dosage: 150MG PER DAY
     Route: 048
     Dates: start: 20041015
  3. LANTUS [Concomitant]
  4. NOVOLOG [Concomitant]
  5. PLAVIX [Concomitant]
  6. HYTRIN [Concomitant]
  7. ACCUPRIL [Concomitant]
  8. CORDARONE [Concomitant]
  9. LANOXIN [Concomitant]
  10. COREG [Concomitant]
  11. METHOTREXATE [Concomitant]
  12. CRESTOR [Concomitant]
  13. TRIAMTERENE AND HYDROCHLOROTHIAZIDE [Concomitant]
  14. MULTIVITAMIN [Concomitant]
  15. ASPIRIN [Concomitant]
  16. CALCIUM GLUCONATE [Concomitant]
  17. FOLIC ACID [Concomitant]

REACTIONS (2)
  - BLOOD GLUCOSE INCREASED [None]
  - DRUG INEFFECTIVE [None]
